FAERS Safety Report 9858935 (Version 3)
Quarter: 2014Q1

REPORT INFORMATION
  Report Type: Spontaneous
  Country: JP (occurrence: JP)
  Receive Date: 20140131
  Receipt Date: 20140227
  Transmission Date: 20141002
  Serious: Yes (Hospitalization)
  Sender: FDA-Public Use
  Company Number: JP-B.I. PHARMACEUTICALS,INC./RIDGEFIELD-2014-BI-03836NB

PATIENT
  Age: 89 Year
  Sex: Female
  Weight: 34 kg

DRUGS (10)
  1. BI-SIFROL [Suspect]
     Indication: RESTLESS LEGS SYNDROME
     Dosage: 0.125 MG
     Route: 048
     Dates: start: 20131212, end: 20131215
  2. PRAVASTATIN NA / PRAVASTATIN SODIUM [Concomitant]
     Dosage: 5 MG
     Route: 048
  3. UNISIA/ CANDESARTAN CILEXETIL_AMLODIPINE BESILATE COMBINED DRUG [Concomitant]
     Route: 048
  4. NESINA /ALOGLIPTIN BENZOATE [Concomitant]
     Dosage: 25 MG
     Route: 048
  5. METGLUCO/METFORMIN HYDROCHLORIDE [Concomitant]
     Dosage: 250 MG
     Route: 048
  6. BAYASPIRIN / ASPIRIN [Concomitant]
     Dosage: 100 MG
     Route: 065
  7. NEXIUM / ESOMEPRAZOLE MAGNESIUM HYDRATE [Concomitant]
     Dosage: 20 MG
     Route: 065
  8. BUP-4 / PROPIVERINE HYDROCHLORIDE [Concomitant]
     Dosage: 20 MG
     Route: 065
  9. MAGLAX / MAGNESIUM OXIDE [Concomitant]
     Route: 048
  10. MOHRUS TAPE L / KETOPROFEN [Concomitant]
     Dosage: 40 MG
     Route: 061

REACTIONS (3)
  - Fall [Unknown]
  - Muscular weakness [Unknown]
  - Somnolence [Recovered/Resolved]
